FAERS Safety Report 9245106 (Version 1)
Quarter: 2013Q2

REPORT INFORMATION
  Report Type: Spontaneous
  Country: FR (occurrence: FR)
  Receive Date: 20130422
  Receipt Date: 20130422
  Transmission Date: 20140414
  Serious: Yes (Death, Hospitalization)
  Sender: FDA-Public Use
  Company Number: PHHY2013FR036804

PATIENT
  Age: 69 Year
  Sex: Female

DRUGS (4)
  1. EVEROLIMUS [Suspect]
     Indication: INSULINOMA
     Dosage: 10 MG, DAILY
     Route: 048
  2. EVEROLIMUS [Suspect]
     Dosage: 5 MG, DAILY
     Route: 048
  3. DIAZOXIDE [Concomitant]
     Indication: HYPOGLYCAEMIA
  4. GLUCOSE [Concomitant]
     Indication: HYPOGLYCAEMIA

REACTIONS (3)
  - Insulinoma [Fatal]
  - Malignant neoplasm progression [Fatal]
  - Cyst rupture [Unknown]
